FAERS Safety Report 7331208-3 (Version None)
Quarter: 2011Q1

REPORT INFORMATION
  Report Type: 
  Country: None (occurrence: None)
  Receive Date: 20110304
  Receipt Date: 20110226
  Transmission Date: 20110831
  Serious: Yes (Other)
  Sender: FDA-Public Use
  Company Number: BR-PFIZER INC-2011043039

PATIENT
  Sex: Male

DRUGS (1)
  1. CAVERJECT [Suspect]
     Route: 017

REACTIONS (3)
  - MOOD ALTERED [None]
  - MENTAL DISORDER [None]
  - PROSTATECTOMY [None]
